FAERS Safety Report 8265464-4 (Version None)
Quarter: 2012Q2

REPORT INFORMATION
  Report Type: 
  Country: None (occurrence: None)
  Receive Date: 20120403
  Receipt Date: 20120321
  Transmission Date: 20120825
  Serious: Yes (Hospitalization, Other)
  Sender: FDA-Public Use
  Company Number: ADR-2012-00315

PATIENT
  Age: 35 Year
  Sex: Male
  Weight: 65 kg

DRUGS (1)
  1. BACLOFEN [Suspect]
     Dosage: 50 MCG/DAY

REACTIONS (5)
  - BLOOD CREATINE PHOSPHOKINASE INCREASED [None]
  - C-REACTIVE PROTEIN INCREASED [None]
  - WHEEZING [None]
  - BRONCHITIS [None]
  - HYPOGLYCAEMIA [None]
